FAERS Safety Report 12274176 (Version 1)
Quarter: 2016Q2

REPORT INFORMATION
  Report Type: Spontaneous
  Country: US (occurrence: US)
  Receive Date: 20160415
  Receipt Date: 20160415
  Transmission Date: 20160815
  Serious: No
  Sender: FDA-Public Use
  Company Number: US-ALLERGAN-1519800US

PATIENT
  Age: 51 Year
  Sex: Male

DRUGS (3)
  1. LUMIGAN [Suspect]
     Active Substance: BIMATOPROST
     Indication: INTRAOCULAR PRESSURE INCREASED
     Dosage: 2 GTT, QHS
     Route: 047
     Dates: start: 20150802
  2. LUMIGAN [Suspect]
     Active Substance: BIMATOPROST
     Dosage: UNK UNK, QHS
     Route: 047
  3. LUMIGAN [Suspect]
     Active Substance: BIMATOPROST
     Dosage: UNK UNK, QHS
     Route: 047

REACTIONS (1)
  - Ocular hyperaemia [Not Recovered/Not Resolved]

NARRATIVE: CASE EVENT DATE: 201508
